FAERS Safety Report 15783497 (Version 1)
Quarter: 2019Q1

REPORT INFORMATION
  Report Type: Report from Study
  Country: US (occurrence: US)
  Receive Date: 20190102
  Receipt Date: 20190102
  Transmission Date: 20190417
  Serious: Yes (Other)
  Sender: FDA-Public Use
  Company Number: US-SA-2018SA396619

PATIENT
  Age: 61 Year
  Sex: Male

DRUGS (2)
  1. INSULIN GLARGINE [Suspect]
     Active Substance: INSULIN GLARGINE
     Indication: TYPE 2 DIABETES MELLITUS
     Dosage: 100 U, BID
  2. NOVOLOG [Concomitant]
     Active Substance: INSULIN ASPART
     Indication: TYPE 2 DIABETES MELLITUS
     Dosage: 25 U, QD

REACTIONS (8)
  - Neuropathy peripheral [Unknown]
  - Product use issue [Unknown]
  - Blindness [Unknown]
  - End stage renal disease [Unknown]
  - Product dose omission [Unknown]
  - Diabetic retinopathy [Unknown]
  - Inability to afford medication [Unknown]
  - Diabetes mellitus inadequate control [Recovering/Resolving]
